FAERS Safety Report 10654456 (Version 6)
Quarter: 2015Q1

REPORT INFORMATION
  Report Type: Spontaneous
  Country: US (occurrence: US)
  Receive Date: 20141216
  Receipt Date: 20150302
  Transmission Date: 20150720
  Serious: Yes (Disabling)
  Sender: FDA-Public Use
  Company Number: US-009507513-1204USA04484

PATIENT
  Sex: Male
  Weight: 78.46 kg

DRUGS (1)
  1. PROPECIA [Suspect]
     Active Substance: FINASTERIDE
     Indication: ALOPECIA
     Dosage: 1 MG, QD
     Route: 048
     Dates: start: 2004, end: 2006

REACTIONS (27)
  - Depression [Not Recovered/Not Resolved]
  - Weight increased [Unknown]
  - Spermatogenesis abnormal [Unknown]
  - Erectile dysfunction [Not Recovered/Not Resolved]
  - Sexual dysfunction [Not Recovered/Not Resolved]
  - Stress at work [Unknown]
  - Dermatitis allergic [Unknown]
  - Secondary hypogonadism [Unknown]
  - Drug administration error [Unknown]
  - Impaired fasting glucose [Unknown]
  - Tension headache [Unknown]
  - Arthropathy [Unknown]
  - Ejaculation disorder [Not Recovered/Not Resolved]
  - Ejaculation failure [Not Recovered/Not Resolved]
  - Asthenia [Unknown]
  - Cholelithiasis [Recovered/Resolved]
  - Tremor [Unknown]
  - Cognitive disorder [Not Recovered/Not Resolved]
  - Libido decreased [Not Recovered/Not Resolved]
  - Pancreatic enlargement [Unknown]
  - Anxiety [Not Recovered/Not Resolved]
  - Irritable bowel syndrome [Unknown]
  - Blood pressure increased [Unknown]
  - Primary hypogonadism [Unknown]
  - Hypothyroidism [Unknown]
  - Cardiac murmur [Unknown]
  - Onychoclasis [Unknown]

NARRATIVE: CASE EVENT DATE: 2005
